FAERS Safety Report 18860156 (Version 1)
Quarter: 2021Q1

REPORT INFORMATION
  Report Type: Spontaneous
  Country: US (occurrence: US)
  Receive Date: 20210208
  Receipt Date: 20210208
  Transmission Date: 20210420
  Serious: No
  Sender: FDA-Public Use
  Company Number: US-AMGEN-USASP2021016766

PATIENT
  Age: 79 Year
  Sex: Female

DRUGS (4)
  1. MODERNA COVID?19 VACCINE [Suspect]
     Active Substance: CX-024414
     Indication: PRODUCT USED FOR UNKNOWN INDICATION
     Dosage: UNK
     Route: 065
     Dates: start: 202101
  2. CALCIUM [Concomitant]
     Active Substance: CALCIUM
     Dosage: UNK, QD
  3. PROLIA [Suspect]
     Active Substance: DENOSUMAB
     Indication: OSTEOPOROSIS POSTMENOPAUSAL
     Dosage: UNK
     Route: 065
     Dates: start: 2018
  4. ZINC. [Concomitant]
     Active Substance: ZINC
     Dosage: UNK, QD

REACTIONS (10)
  - Tooth extraction [Unknown]
  - Groin pain [Unknown]
  - Ageusia [Unknown]
  - Tooth infection [Unknown]
  - Pain [Unknown]
  - Multiple allergies [Unknown]
  - Blood cholesterol increased [Not Recovered/Not Resolved]
  - Salivary hypersecretion [Unknown]
  - Pain in extremity [Unknown]
  - Tenderness [Recovered/Resolved]

NARRATIVE: CASE EVENT DATE: 202101
